FAERS Safety Report 7378538-7 (Version None)
Quarter: 2011Q1

REPORT INFORMATION
  Report Type: 
  Country: None (occurrence: None)
  Receive Date: 20110328
  Receipt Date: 20110315
  Transmission Date: 20110831
  Serious: Yes (Other)
  Sender: FDA-Public Use
  Company Number: US-JNJFOC-20110306925

PATIENT
  Sex: Male
  Weight: 109.77 kg

DRUGS (5)
  1. METOPROLOL SUCCINATE [Concomitant]
  2. METHOTREXATE [Concomitant]
  3. DIGOXIN [Concomitant]
  4. REMICADE [Suspect]
     Indication: RHEUMATOID ARTHRITIS
     Route: 042
  5. ASPIRIN [Concomitant]
     Dosage: LOW DOSE

REACTIONS (2)
  - ARRHYTHMIA [None]
  - ATRIAL FIBRILLATION [None]
